FAERS Safety Report 8989516 (Version 1)
Quarter: 2012Q4

REPORT INFORMATION
  Report Type: 
  Country: BR (occurrence: BR)
  Receive Date: 20121227
  Receipt Date: 20121227
  Transmission Date: 20130627
  Serious: Yes (Hospitalization, Other)
  Sender: FDA-Public Use
  Company Number: BR-JNJFOC-20121212870

PATIENT
  Sex: Male

DRUGS (2)
  1. XARELTO [Suspect]
     Indication: HYPERCOAGULATION
     Route: 048
  2. XARELTO [Suspect]
     Indication: THROMBOSIS PROPHYLAXIS
     Route: 048

REACTIONS (5)
  - Haemorrhagic stroke [Unknown]
  - Humerus fracture [Unknown]
  - Joint dislocation [Unknown]
  - Fall [Unknown]
  - Off label use [Unknown]
